FAERS Safety Report 25384282 (Version 1)
Quarter: 2025Q2

REPORT INFORMATION
  Report Type: Spontaneous
  Country: PT (occurrence: PT)
  Receive Date: 20250602
  Receipt Date: 20250602
  Transmission Date: 20250717
  Serious: Yes (Other)
  Sender: ACCORD
  Company Number: None

PATIENT
  Age: 70 Year
  Sex: Female

DRUGS (1)
  1. PACLITAXEL [Suspect]
     Active Substance: PACLITAXEL
     Indication: Product used for unknown indication
     Dosage: 128 MG (WEEKLY)
     Dates: start: 20250303

REACTIONS (1)
  - Toxic skin eruption [Recovering/Resolving]

NARRATIVE: CASE EVENT DATE: 20250428
